FAERS Safety Report 14183286 (Version 1)
Quarter: 2017Q4

REPORT INFORMATION
  Report Type: Report from Study
  Country: US (occurrence: US)
  Receive Date: 20171113
  Receipt Date: 20171113
  Transmission Date: 20180321
  Serious: Yes (Hospitalization, Other)
  Sender: FDA-Public Use
  Company Number: US-BAYER-2016-226978

PATIENT
  Age: 66 Year
  Sex: Male
  Weight: 73.47 kg

DRUGS (13)
  1. ADEMPAS [Suspect]
     Active Substance: RIOCIGUAT
     Indication: PULMONARY HYPERTENSION
     Dosage: 2.5 MG, TID
     Route: 048
  2. ADEMPAS [Suspect]
     Active Substance: RIOCIGUAT
     Indication: PULMONARY HYPERTENSION
     Dosage: 1.0 MG, TID
     Route: 048
  3. ADEMPAS [Suspect]
     Active Substance: RIOCIGUAT
     Indication: PULMONARY HYPERTENSION
     Dosage: 2.5 MG, TID
     Route: 048
  4. ADEMPAS [Suspect]
     Active Substance: RIOCIGUAT
     Indication: PULMONARY HYPERTENSION
     Dosage: 2.5 MG, TID
     Route: 048
  5. LYRICA [Concomitant]
     Active Substance: PREGABALIN
     Indication: NEUROPATHY PERIPHERAL
     Dosage: UNK
  6. APIXABAN [Concomitant]
     Active Substance: APIXABAN
  7. XARELTO [Suspect]
     Active Substance: RIVAROXABAN
     Dosage: UNK
  8. ADEMPAS [Suspect]
     Active Substance: RIOCIGUAT
     Indication: PULMONARY HYPERTENSION
     Dosage: UNK
     Dates: start: 20151023
  9. HYDROCODONE [Concomitant]
     Active Substance: HYDROCODONE
     Indication: BACK DISORDER
  10. ADEMPAS [Suspect]
     Active Substance: RIOCIGUAT
     Indication: PULMONARY HYPERTENSION
     Dosage: 2.5 MG, UNK
     Route: 048
     Dates: start: 20150815
  11. ADEMPAS [Suspect]
     Active Substance: RIOCIGUAT
     Indication: PULMONARY HYPERTENSION
     Dosage: 2.5 MG, TID
     Route: 048
  12. ADEMPAS [Suspect]
     Active Substance: RIOCIGUAT
     Indication: PULMONARY HYPERTENSION
     Dosage: 2.5 MG, TID
     Route: 048
  13. OPSUMIT [Concomitant]
     Active Substance: MACITENTAN
     Dosage: UNK

REACTIONS (30)
  - Dehydration [Unknown]
  - Headache [Unknown]
  - Malaise [Unknown]
  - Reading disorder [None]
  - Dysgraphia [None]
  - Urinary tract infection [Not Recovered/Not Resolved]
  - Urinary tract infection [Unknown]
  - Lung transplant [None]
  - Abdominal pain [Unknown]
  - Gun shot wound [None]
  - Spinal operation [None]
  - Fluid retention [Unknown]
  - Nausea [Unknown]
  - Traumatic fracture [Unknown]
  - Thinking abnormal [None]
  - Malaise [Unknown]
  - Retching [Unknown]
  - Asthenia [None]
  - Memory impairment [None]
  - Feeling abnormal [Unknown]
  - Loss of consciousness [Unknown]
  - Traumatic haemorrhage [Unknown]
  - Vomiting [Unknown]
  - Gastric disorder [Unknown]
  - Neuropathy peripheral [Unknown]
  - Feeling abnormal [None]
  - Abdominal discomfort [Unknown]
  - Fall [None]
  - Balance disorder [None]
  - Amnesia [None]

NARRATIVE: CASE EVENT DATE: 20161031
